FAERS Safety Report 7866350-1 (Version None)
Quarter: 2011Q4

REPORT INFORMATION
  Report Type: 
  Country: None (occurrence: None)
  Receive Date: 20111028
  Receipt Date: 20110603
  Transmission Date: 20120403
  Serious: No
  Sender: FDA-Public Use
  Company Number: US-GLAXOSMITHKLINE-A0930163A

PATIENT
  Age: 62 Year
  Sex: Male

DRUGS (5)
  1. XANAX [Concomitant]
  2. ADVAIR DISKUS 100/50 [Suspect]
     Indication: ASTHMA
     Dosage: 1PUFF TWICE PER DAY
     Route: 055
     Dates: start: 20101231
  3. ZYPREXA [Suspect]
     Dates: start: 20110526
  4. BYSTOLIC [Concomitant]
  5. ALLOPURINOL [Concomitant]

REACTIONS (1)
  - OEDEMA PERIPHERAL [None]
